FAERS Safety Report 5496396-2 (Version None)
Quarter: 2007Q4

REPORT INFORMATION
  Report Type: 
  Country: None (occurrence: None)
  Receive Date: 20071025
  Receipt Date: 20070403
  Transmission Date: 20080405
  Serious: No
  Sender: FDA-Public Use
  Company Number: A0645791A

PATIENT
  Sex: Male

DRUGS (5)
  1. ADVAIR DISKUS 100/50 [Suspect]
     Indication: ASTHMA
     Dosage: 1BLS TWICE PER DAY
     Route: 055
  2. TENORETIC 100 [Concomitant]
  3. NORVASC [Concomitant]
  4. VASOTEC [Concomitant]
  5. K-DUR 10 [Concomitant]

REACTIONS (1)
  - CONTUSION [None]
